FAERS Safety Report 10995328 (Version 1)
Quarter: 2015Q2

REPORT INFORMATION
  Report Type: Spontaneous
  Country: US (occurrence: US)
  Receive Date: 20150407
  Receipt Date: 20150407
  Transmission Date: 20150821
  Serious: Yes (Death, Other)
  Sender: FDA-Public Use
  Company Number: US-ASTRAZENECA-2014SE40066

PATIENT
  Age: 21083 Day
  Sex: Male

DRUGS (14)
  1. BYSTOLIC [Concomitant]
     Active Substance: NEBIVOLOL HYDROCHLORIDE
     Route: 048
  2. GLUCOPHAGE [Concomitant]
     Active Substance: METFORMIN HYDROCHLORIDE
  3. ZANTAC [Concomitant]
     Active Substance: RANITIDINE HYDROCHLORIDE
  4. DIOVAN [Concomitant]
     Active Substance: VALSARTAN
  5. HCTZ [Concomitant]
     Active Substance: HYDROCHLOROTHIAZIDE
  6. COLCHICINE. [Concomitant]
     Active Substance: COLCHICINE
  7. GLIPIZIDE. [Concomitant]
     Active Substance: GLIPIZIDE
  8. LASIX [Concomitant]
     Active Substance: FUROSEMIDE
  9. PRILOSEC [Concomitant]
     Active Substance: OMEPRAZOLE MAGNESIUM
  10. BYETTA [Suspect]
     Active Substance: EXENATIDE
     Indication: TYPE 2 DIABETES MELLITUS
     Route: 065
     Dates: start: 20110407
  11. ASA [Concomitant]
     Active Substance: ASPIRIN
  12. PLAVIX [Concomitant]
     Active Substance: CLOPIDOGREL BISULFATE
  13. BYETTA [Suspect]
     Active Substance: EXENATIDE
     Indication: TYPE 2 DIABETES MELLITUS
     Route: 065
     Dates: start: 20081215, end: 201105
  14. AMBIEN CR [Concomitant]
     Active Substance: ZOLPIDEM TARTRATE

REACTIONS (3)
  - Renal cell carcinoma [Unknown]
  - Adenocarcinoma pancreas [Fatal]
  - Pancreatitis [Unknown]

NARRATIVE: CASE EVENT DATE: 20110901
